FAERS Safety Report 20404517 (Version 1)
Quarter: 2022Q1

REPORT INFORMATION
  Report Type: Spontaneous
  Country: US (occurrence: US)
  Receive Date: 20220131
  Receipt Date: 20220131
  Transmission Date: 20220423
  Serious: Yes (Other)
  Sender: FDA-Public Use
  Company Number: US-CELGENE-USA-20220106371

PATIENT

DRUGS (3)
  1. ABRAXANE [Suspect]
     Active Substance: PACLITAXEL
     Indication: Neoplasm malignant
     Route: 065
  2. GEMCITABINE [Suspect]
     Active Substance: GEMCITABINE
     Indication: Neoplasm malignant
     Route: 065
  3. LY-3200882 [Suspect]
     Active Substance: LY-3200882
     Indication: Neoplasm malignant
     Dosage: 70 MILLIGRAM
     Route: 065

REACTIONS (3)
  - Cardiac failure [Unknown]
  - Subclavian vein thrombosis [Unknown]
  - Myocarditis [Unknown]
